FAERS Safety Report 9690714 (Version 2)
Quarter: 2014Q1

REPORT INFORMATION
  Report Type: Spontaneous
  Country: NO (occurrence: NO)
  Receive Date: 20131115
  Receipt Date: 20140328
  Transmission Date: 20141002
  Serious: Yes (Hospitalization, Other)
  Sender: FDA-Public Use
  Company Number: NO-009507513-1311NOR005437

PATIENT
  Age: 65 Year
  Sex: Male

DRUGS (3)
  1. FOSAMAX [Suspect]
     Indication: OSTEOPOROSIS
     Dosage: 70 MG, QW
     Dates: start: 200409, end: 201201
  2. SAROTEX [Suspect]
  3. TRIATEC (RAMIPRIL) [Concomitant]
     Indication: HYPERTENSION

REACTIONS (10)
  - Intermittent claudication [Unknown]
  - Pain in extremity [Unknown]
  - Abdominal pain upper [Unknown]
  - Osteonecrosis of jaw [Unknown]
  - Paraesthesia oral [Not Recovered/Not Resolved]
  - Decreased immune responsiveness [Unknown]
  - Herpes zoster [Unknown]
  - Fatigue [Unknown]
  - Hypertension [Unknown]
  - Drug ineffective [Unknown]
